FAERS Safety Report 8839238 (Version 1)
Quarter: 2012Q4

REPORT INFORMATION
  Report Type: Spontaneous
  Country: US (occurrence: None)
  Receive Date: 20121011
  Receipt Date: 20121011
  Transmission Date: 20130627
  Serious: Yes (Life-Threatening, Disabling)
  Sender: FDA-Public Use
  Company Number: None

PATIENT
  Age: 49 Year
  Sex: Female
  Weight: 62.6 kg

DRUGS (4)
  1. RISPERIDONE [Suspect]
     Route: 048
     Dates: start: 20110406
  2. RISPERIDONE [Suspect]
     Route: 048
     Dates: start: 20110406
  3. BENZTROPINE MESYLATE [Suspect]
     Route: 048
     Dates: start: 20110406
  4. BENZTROPINE MESYLATE [Suspect]
     Route: 048
     Dates: start: 20110406

REACTIONS (4)
  - Nasal congestion [None]
  - Dry mouth [None]
  - Suffocation feeling [None]
  - Lung disorder [None]
